FAERS Safety Report 13011108 (Version 1)
Quarter: 2016Q4

REPORT INFORMATION
  Report Type: Spontaneous
  Country: DE (occurrence: DE)
  Receive Date: 20161208
  Receipt Date: 20161208
  Transmission Date: 20170207
  Serious: Yes (Death, Life-Threatening)
  Sender: FDA-Public Use
  Company Number: GXKR2016DE005498

PATIENT

DRUGS (2)
  1. FALITHROM [Suspect]
     Active Substance: PHENPROCOUMON
     Indication: PULMONARY EMBOLISM
     Dosage: ACCORDING TO INR
     Route: 048
     Dates: end: 20161121
  2. ACETYLSALICYLIC ACID [Interacting]
     Active Substance: ASPIRIN
     Indication: PRODUCT USED FOR UNKNOWN INDICATION
     Dosage: 100 MG/DAY
     Route: 048
     Dates: end: 20161121

REACTIONS (1)
  - Cerebral haemorrhage [Fatal]

NARRATIVE: CASE EVENT DATE: 20161121
